FAERS Safety Report 5274264-9 (Version None)
Quarter: 2007Q1

REPORT INFORMATION
  Report Type: 
  Country: None (occurrence: None)
  Receive Date: 20070323
  Receipt Date: 20070313
  Transmission Date: 20070707
  Serious: Yes (Other)
  Sender: FDA-Public Use
  Company Number: US-JNJFOC-20070303536

PATIENT
  Age: 7 Year
  Sex: Male
  Weight: 30.84 kg

DRUGS (2)
  1. TOPAMAX [Suspect]
     Indication: EPILEPSY
     Route: 048
  2. TRILEPTAL [Concomitant]
     Indication: EPILEPSY
     Route: 048

REACTIONS (3)
  - BLINDNESS UNILATERAL [None]
  - EYE PAIN [None]
  - VISION BLURRED [None]
